FAERS Safety Report 14779125 (Version 2)
Quarter: 2018Q2

REPORT INFORMATION
  Report Type: Report from Study
  Country: FR (occurrence: FR)
  Receive Date: 20180419
  Receipt Date: 20180625
  Transmission Date: 20180711
  Serious: Yes (Death, Hospitalization, Other)
  Sender: FDA-Public Use
  Company Number: FR-PFIZER INC-2018157787

PATIENT
  Age: 75 Year
  Sex: Male
  Weight: 73 kg

DRUGS (9)
  1. TAHOR [Concomitant]
     Active Substance: ATORVASTATIN CALCIUM
     Indication: BLOOD CHOLESTEROL NORMAL
     Dosage: UNK
     Dates: end: 201801
  2. CORDARONE [Concomitant]
     Active Substance: AMIODARONE HYDROCHLORIDE
     Indication: ARRHYTHMIA
     Dosage: UNK
     Dates: end: 201801
  3. IMOVANE [Concomitant]
     Active Substance: ZOPICLONE
     Indication: INSOMNIA
  4. ALLOPURINOL. [Concomitant]
     Active Substance: ALLOPURINOL
     Indication: OSTEOARTHRITIS
     Dosage: UNK
     Dates: end: 201801
  5. RILMENIDINE [Concomitant]
     Active Substance: RILMENIDINE
     Indication: HYPERTENSION
     Dosage: UNK
     Dates: start: 2007, end: 201801
  6. COUMADINE [Concomitant]
     Active Substance: WARFARIN SODIUM
     Indication: ARRHYTHMIA
     Dosage: UNK
     Dates: start: 2007, end: 201712
  7. JOSIR [Concomitant]
     Active Substance: TAMSULOSIN
     Indication: BENIGN PROSTATIC HYPERPLASIA
     Dosage: UNK
     Dates: end: 201801
  8. SUNITINIB MALATE. [Suspect]
     Active Substance: SUNITINIB MALATE
     Dosage: 50 MG, DAILY CYCLIC: 2 WEEKS OOT OF 3
     Dates: start: 201705, end: 20171227
  9. XGEVA [Suspect]
     Active Substance: DENOSUMAB
     Indication: METASTASES TO BONE
     Dosage: UNK
     Dates: start: 201703, end: 201712

REACTIONS (16)
  - General physical health deterioration [Fatal]
  - Spinal deformity [Not Recovered/Not Resolved]
  - Ulcer [Unknown]
  - Pain [Recovering/Resolving]
  - Asthenia [Unknown]
  - Atrial fibrillation [Unknown]
  - Sarcopenia [Fatal]
  - C-reactive protein increased [Unknown]
  - Fall [Unknown]
  - Weight decreased [Unknown]
  - Back pain [Not Recovered/Not Resolved]
  - Leukoencephalopathy [Unknown]
  - Thrombocytopenia [Unknown]
  - Osteonecrosis of jaw [Recovered/Resolved with Sequelae]
  - Purpura [Unknown]
  - Dry skin [Unknown]

NARRATIVE: CASE EVENT DATE: 20170825
